FAERS Safety Report 4367976-2 (Version None)
Quarter: 2004Q2

REPORT INFORMATION
  Report Type: 
  Country: None (occurrence: None)
  Receive Date: 20040601
  Receipt Date: 20040524
  Transmission Date: 20050107
  Serious: No
  Sender: FDA-Public Use
  Company Number: 04-009

PATIENT
  Age: 55 Year
  Sex: Male

DRUGS (1)
  1. PROPOFOL INJECTABLE [Suspect]
     Indication: SEDATION
     Dosage: IV
     Route: 042
     Dates: start: 20040511, end: 20040517

REACTIONS (5)
  - ARTERIAL THROMBOSIS [None]
  - MEDICAL DEVICE COMPLICATION [None]
  - THROMBOSIS [None]
  - TRACHEAL HAEMORRHAGE [None]
  - TRACHEAL OBSTRUCTION [None]
